FAERS Safety Report 10628180 (Version 1)
Quarter: 2014Q4

REPORT INFORMATION
  Report Type: Spontaneous
  Country: US (occurrence: None)
  Receive Date: 20141203
  Receipt Date: 20141203
  Transmission Date: 20150529
  Serious: No
  Sender: FDA-Public Use
  Company Number: None

PATIENT
  Age: 47 Year
  Sex: Female
  Weight: 94.8 kg

DRUGS (1)
  1. BISAC-EVAC [Suspect]
     Active Substance: BISACODYL

REACTIONS (7)
  - Dyspnoea [None]
  - Dizziness [None]
  - Rash [None]
  - Burning sensation [None]
  - Headache [None]
  - Abdominal pain [None]
  - Pruritus [None]

NARRATIVE: CASE EVENT DATE: 20141108
